FAERS Safety Report 7579970-9 (Version None)
Quarter: 2011Q2

REPORT INFORMATION
  Report Type: 
  Country: None (occurrence: None)
  Receive Date: 20110629
  Receipt Date: 20110623
  Transmission Date: 20111010
  Serious: Yes (Other)
  Sender: FDA-Public Use
  Company Number: US-JNJFOC-20110611100

PATIENT
  Sex: Female
  Weight: 57.61 kg

DRUGS (2)
  1. TOPAMAX [Suspect]
     Indication: MIGRAINE PROPHYLAXIS
     Route: 048
     Dates: start: 20100701
  2. FLONASE [Concomitant]
     Indication: UPPER-AIRWAY COUGH SYNDROME
     Route: 065

REACTIONS (1)
  - UTERINE LEIOMYOMA [None]
